FAERS Safety Report 9515535 (Version 2)
Quarter: 2014Q1

REPORT INFORMATION
  Report Type: Spontaneous
  Country: US (occurrence: None)
  Receive Date: 20130305
  Receipt Date: 20140306
  Transmission Date: 20141002
  Serious: Yes (Other)
  Sender: FDA-Public Use
  Company Number: 163-21880-12013240

PATIENT
  Age: 73 Year
  Sex: Female

DRUGS (1)
  1. REVLIMID (LENALIDOMIDE) (15 MG, CAPSULES) [Suspect]
     Indication: PLASMA CELL MYELOMA
     Dosage: 1 IN 2 D
     Route: 048
     Dates: start: 20100729, end: 20100909

REACTIONS (8)
  - Renal disorder [None]
  - Abdominal pain upper [None]
  - Pain in extremity [None]
  - Rash [None]
  - Pruritus [None]
  - Gout [None]
  - Drug dose omission [None]
  - Local swelling [None]
